FAERS Safety Report 10217210 (Version 1)
Quarter: 2014Q2

REPORT INFORMATION
  Report Type: Spontaneous
  Country: DK (occurrence: DK)
  Receive Date: 20140604
  Receipt Date: 20140604
  Transmission Date: 20141212
  Serious: Yes (Other)
  Sender: FDA-Public Use
  Company Number: DK-WATSON-2014-11656

PATIENT
  Age: 11 Year
  Sex: Female
  Weight: 65 kg

DRUGS (4)
  1. LAMOTRIGIN ACTAVIS [Suspect]
     Indication: EPILEPSY
     Dosage: 150 MG IN THE MORNING AND 100 MG IN THE EVENING
     Route: 065
     Dates: start: 20120301
  2. AVAMYS [Concomitant]
     Indication: CONJUNCTIVITIS
     Dosage: UNK
     Route: 065
     Dates: start: 20100110, end: 2010
  3. PULMICORT [Concomitant]
     Indication: ASTHMA
     Dosage: UNK
     Route: 065
     Dates: start: 20100110, end: 2010
  4. BRICANYL [Concomitant]
     Indication: ASTHMA
     Dosage: UNK
     Route: 065
     Dates: start: 20100110, end: 2010

REACTIONS (9)
  - Memory impairment [Not Recovered/Not Resolved]
  - Abnormal behaviour [Not Recovered/Not Resolved]
  - Nystagmus [Not Recovered/Not Resolved]
  - Tic [Not Recovered/Not Resolved]
  - Sleep disorder [Not Recovered/Not Resolved]
  - Abdominal discomfort [Not Recovered/Not Resolved]
  - Fatigue [Not Recovered/Not Resolved]
  - Dry mouth [Not Recovered/Not Resolved]
  - Constipation [Not Recovered/Not Resolved]
